FAERS Safety Report 8761544 (Version 2)
Quarter: 2012Q4

REPORT INFORMATION
  Report Type: Spontaneous
  Country: ES (occurrence: None)
  Receive Date: 20120809
  Receipt Date: 20120928
  Transmission Date: 20130627
  Serious: Yes (Hospitalization)
  Sender: FDA-Public Use
  Company Number: 2012033013

PATIENT
  Age: 78 Year
  Sex: Female

DRUGS (8)
  1. PRIVIGEN (IMMUNE GLOBULIN INTRAVENOUS (HUMAN) 10% LIQUID) [Suspect]
     Indication: MYASTHENIA GRAVIS
     Route: 042
     Dates: start: 20120730, end: 20120803
  2. PRIVIGEN (IMMUNE GLOBULIN INTRAVENOUS (HUMAN) 10% LIQUID) [Suspect]
     Indication: MYASTHENIA GRAVIS
  3. CANDESARTAN (CANDESARTAN) [Concomitant]
  4. HYDROCHLOROTHIAZIDE (HYDROCHLOROTHIAZIDE) [Concomitant]
  5. ACENOCOUMAROL (ACENOCOUMAROL) [Concomitant]
  6. PYRIDOSTIGMINE (PYRIDOSTIGMINE) [Concomitant]
  7. AZATHIOPRINE (AZATHIOPRINE) [Concomitant]
  8. ZOLPIDEM (ZOLPIDEM) [Concomitant]

REACTIONS (8)
  - Haemolytic anaemia [None]
  - Asthenia [None]
  - Fatigue [None]
  - Chromaturia [None]
  - Blood lactate dehydrogenase increased [None]
  - Haemoglobin decreased [None]
  - Off label use [None]
  - Renal failure [None]
